FAERS Safety Report 9300405 (Version 1)
Quarter: 2012Q4

REPORT INFORMATION
  Report Type: Spontaneous
  Country: US (occurrence: None)
  Receive Date: 20121022
  Receipt Date: 20121022
  Transmission Date: 20130627
  Serious: Yes (Other)
  Sender: FDA-Public Use
  Company Number: 2011MA015557

PATIENT
  Sex: Female
  Weight: 58.97 kg

DRUGS (32)
  1. METOCLOPRAMIDE TABLETS USP, 10 MG (PUREPAC) [Suspect]
     Indication: GERD
     Dosage: 10 MG;2 TABS AC;PO
     Dates: start: 200208, end: 200508
  2. AMBIEN [Concomitant]
  3. CALCIUM [Concomitant]
  4. CHLORDIAZEPOXIDE [Concomitant]
  5. FLEXERIL [Concomitant]
  6. EFFEXOR [Concomitant]
  7. ENULOSE [Concomitant]
  8. FERROUS SULFATE [Concomitant]
  9. FOSMAX [Concomitant]
  10. FUROSEMIDE [Concomitant]
  11. VICODIN [Concomitant]
  12. HYDROCORTISONE [Concomitant]
  13. INDOMETHACIN [Concomitant]
  14. MECLIZINE [Concomitant]
  15. MEDROL DOSEPAK [Concomitant]
  16. NEURONTIN [Concomitant]
  17. NEXIUM [Concomitant]
  18. NIFEDIPINE [Concomitant]
  19. NORTRIPTYLINE [Concomitant]
  20. ORAL CONTRACEPTIVE PILLS [Concomitant]
  21. PHENERGAN [Concomitant]
  22. PLAQUENIL [Concomitant]
  23. POTASSIUM CHLORIDE [Concomitant]
  24. PROZAC [Concomitant]
  25. SINGULAIR [Concomitant]
  26. SODIUM CHLORIDE [Concomitant]
  27. ALDACTONE [Concomitant]
  28. SULFASALAZINE [Concomitant]
  29. TOPAMAX [Concomitant]
  30. ZOLOFT [Concomitant]
  31. ZYRTEC [Concomitant]
  32. ALBUTEROL [Concomitant]

REACTIONS (51)
  - Dystonia [None]
  - Tremor [None]
  - Economic problem [None]
  - Emotional disorder [None]
  - Injury [None]
  - Oesophagitis [None]
  - Hiatus hernia [None]
  - Gastritis [None]
  - Chills [None]
  - Malaise [None]
  - Joint swelling [None]
  - Arthralgia [None]
  - Rheumatic fever [None]
  - Dizziness [None]
  - Vertigo [None]
  - Labyrinthitis [None]
  - Poor quality sleep [None]
  - Rash maculo-papular [None]
  - Rash pruritic [None]
  - Angioedema [None]
  - Gastrooesophageal reflux disease [None]
  - Depression [None]
  - Hypertension [None]
  - Hypokalaemia [None]
  - Hyponatraemia [None]
  - Headache [None]
  - Hypochloraemia [None]
  - Hyperglycaemia [None]
  - Hepatic encephalopathy [None]
  - Diarrhoea [None]
  - Decreased appetite [None]
  - Faecal incontinence [None]
  - Fall [None]
  - Joint injury [None]
  - Adrenal insufficiency [None]
  - Impaired gastric emptying [None]
  - Ankle fracture [None]
  - Viral infection [None]
  - Fungal infection [None]
  - Nervousness [None]
  - Sleep disorder [None]
  - Fractured coccyx [None]
  - Anaemia [None]
  - Thrombocytosis [None]
  - Night sweats [None]
  - Neuropathy peripheral [None]
  - Ammonia increased [None]
  - Thyroxine decreased [None]
  - Tri-iodothyronine increased [None]
  - Asthma [None]
  - Rheumatoid arthritis [None]
